FAERS Safety Report 13408487 (Version 1)
Quarter: 2017Q2

REPORT INFORMATION
  Report Type: Spontaneous
  Country: US (occurrence: US)
  Receive Date: 20170405
  Receipt Date: 20170405
  Transmission Date: 20170830
  Serious: Yes (Other)
  Sender: FDA-Public Use
  Company Number: None

PATIENT
  Age: 59 Year
  Sex: Female
  Weight: 76.5 kg

DRUGS (11)
  1. CITRA K POTASSIUM [Concomitant]
  2. RANIDITINE [Concomitant]
  3. INDAPAMIDE. [Concomitant]
     Active Substance: INDAPAMIDE
  4. OXYCODONE [Concomitant]
     Active Substance: OXYCODONE
  5. AMBIEN [Concomitant]
     Active Substance: ZOLPIDEM TARTRATE
  6. NITROFURANTOIN. [Suspect]
     Active Substance: NITROFURANTOIN
     Indication: UPPER RESPIRATORY TRACT INFECTION
     Route: 048
     Dates: start: 20170401, end: 20170402
  7. SYNTHROID [Concomitant]
     Active Substance: LEVOTHYROXINE SODIUM
  8. TESTOSTERONE GEL [Concomitant]
     Active Substance: TESTOSTERONE
  9. MIRALAX FIBER [Concomitant]
  10. TRAMADOLE [Concomitant]
  11. VITAMINS [Concomitant]
     Active Substance: VITAMINS

REACTIONS (6)
  - Eye pain [None]
  - Feeling abnormal [None]
  - Pain [None]
  - Tremor [None]
  - Feeling cold [None]
  - Body temperature increased [None]

NARRATIVE: CASE EVENT DATE: 20170401
